FAERS Safety Report 17057144 (Version 2)
Quarter: 2019Q4

REPORT INFORMATION
  Report Type: Spontaneous
  Country: US (occurrence: US)
  Receive Date: 20191121
  Receipt Date: 20191220
  Transmission Date: 20200122
  Serious: Yes (Life-Threatening, Hospitalization, Disabling, Other)
  Sender: FDA-Public Use
  Company Number: NVSC2019US038630

PATIENT
  Age: 10 Year
  Sex: Male
  Weight: 31 kg

DRUGS (1)
  1. KYMRIAH [Suspect]
     Active Substance: TISAGENLECLEUCEL
     Indication: ACUTE LYMPHOCYTIC LEUKAEMIA
     Dosage: 17 ML, ONCE/SINGLE
     Route: 042
     Dates: start: 20190927, end: 20190927

REACTIONS (10)
  - Acute lymphocytic leukaemia recurrent [Not Recovered/Not Resolved]
  - Tachycardia [Recovered/Resolved]
  - Delirium [Unknown]
  - Depressed level of consciousness [Unknown]
  - Neurotoxicity [Recovered/Resolved]
  - Serum ferritin increased [Unknown]
  - Dysphagia [Unknown]
  - Pyrexia [Recovered/Resolved]
  - Agitation [Unknown]
  - Hallucination [Unknown]

NARRATIVE: CASE EVENT DATE: 20191002
